FAERS Safety Report 16050685 (Version 1)
Quarter: 2019Q1

REPORT INFORMATION
  Report Type: Spontaneous
  Country: US (occurrence: US)
  Receive Date: 20190308
  Receipt Date: 20190308
  Transmission Date: 20190418
  Serious: No
  Sender: FDA-Public Use
  Company Number: US-BIOGEN-2012BI063962

PATIENT
  Sex: Female

DRUGS (1)
  1. TYSABRI [Suspect]
     Active Substance: NATALIZUMAB
     Indication: MULTIPLE SCLEROSIS
     Route: 042
     Dates: start: 20090226

REACTIONS (4)
  - Poor venous access [Unknown]
  - Feeling cold [Unknown]
  - Anxiety [Unknown]
  - Feeling hot [Unknown]

NARRATIVE: CASE EVENT DATE: 2012
